FAERS Safety Report 24686848 (Version 2)
Quarter: 2024Q4

REPORT INFORMATION
  Report Type: Spontaneous
  Country: CZ (occurrence: CZ)
  Receive Date: 20241202
  Receipt Date: 20241212
  Transmission Date: 20250115
  Serious: Yes (Other)
  Sender: MYLAN
  Company Number: CZ-MYLANLABS-2024M1106166

PATIENT
  Age: 81 Year
  Sex: Female

DRUGS (8)
  1. ZIPRASIDONE [Interacting]
     Active Substance: ZIPRASIDONE
     Indication: Pneumonia
     Dosage: 40 MILLIGRAM, BID (1 0 1)
     Route: 065
  2. ALPRAZOLAM [Interacting]
     Active Substance: ALPRAZOLAM
     Indication: Pneumonia
     Dosage: 1 MILLIGRAM, BID (1-0-1)
     Route: 065
  3. CLARITHROMYCIN [Suspect]
     Active Substance: CLARITHROMYCIN
     Indication: Pneumonia
     Dosage: UNK
     Route: 048
  4. AMITRIPTYLINE [Interacting]
     Active Substance: AMITRIPTYLINE
     Indication: Pneumonia
     Dosage: 25 MILLIGRAM, QD
     Route: 065
  5. NORTRIPTYLINE [Interacting]
     Active Substance: NORTRIPTYLINE
     Indication: Pneumonia
     Dosage: UNK UNK, BID
     Route: 065
  6. TRAZODONE [Interacting]
     Active Substance: TRAZODONE HYDROCHLORIDE
     Indication: Pneumonia
     Dosage: 150 MILLIGRAM, QD (IN THE EVENING)
     Route: 065
  7. CLONAZEPAM [Interacting]
     Active Substance: CLONAZEPAM
     Indication: Pneumonia
     Dosage: 0.25 MILLIGRAM
     Route: 065
  8. AMPICILLIN [Concomitant]
     Active Substance: AMPICILLIN
     Indication: Pneumonia
     Dosage: UNK
     Route: 042

REACTIONS (3)
  - Electrocardiogram QT prolonged [Recovered/Resolved]
  - Tachyphylaxis [Unknown]
  - Disturbance in attention [Recovering/Resolving]
